FAERS Safety Report 23311827 (Version 2)
Quarter: 2024Q1

REPORT INFORMATION
  Report Type: Spontaneous
  Country: US (occurrence: US)
  Receive Date: 20231219
  Receipt Date: 20240110
  Transmission Date: 20240410
  Serious: No
  Sender: FDA-Public Use
  Company Number: US-GSKCCFUS-Case-01879112_AE-104876

PATIENT
  Sex: Female

DRUGS (1)
  1. BREO ELLIPTA [Suspect]
     Active Substance: FLUTICASONE FUROATE\VILANTEROL TRIFENATATE
     Indication: Product used for unknown indication
     Dosage: UNK (200/25)

REACTIONS (6)
  - Dyspnoea [Unknown]
  - COVID-19 [Not Recovered/Not Resolved]
  - Ageusia [Unknown]
  - Device use error [Unknown]
  - Product dose omission issue [Unknown]
  - Product complaint [Unknown]
